FAERS Safety Report 25919132 (Version 2)
Quarter: 2025Q4

REPORT INFORMATION
  Report Type: Report from Study
  Country: US (occurrence: US)
  Receive Date: 20251014
  Receipt Date: 20251221
  Transmission Date: 20260117
  Serious: No
  Sender: PFIZER
  Company Number: US-PFIZER INC-202200560800

PATIENT
  Age: 78 Year
  Sex: Female

DRUGS (1)
  1. IBRANCE [Suspect]
     Active Substance: PALBOCICLIB
     Indication: Breast cancer female
     Dosage: 75 MG, CYCLIC (1-TAB ONCE DAILY, 1 WEEK ON AND 2 WEEKS OFF)
     Route: 048

REACTIONS (2)
  - Off label use [Unknown]
  - Blood pressure abnormal [Unknown]
